FAERS Safety Report 7932187-8 (Version None)
Quarter: 2011Q4

REPORT INFORMATION
  Report Type: 
  Country: None (occurrence: None)
  Receive Date: 20111121
  Receipt Date: 20111112
  Transmission Date: 20120403
  Serious: Yes (Hospitalization)
  Sender: FDA-Public Use
  Company Number: CHPA2011IT016039

PATIENT
  Sex: Male

DRUGS (10)
  1. MOTILIUM [Concomitant]
     Dosage: UNK, UNK
  2. TERAPROST [Concomitant]
     Dosage: UNK, UNK
  3. DRUG THERAPY NOS [Concomitant]
     Dosage: UNK, UNK
  4. PANTOPRAZOLE SODIUM [Concomitant]
     Dosage: UNK, UNK
  5. SIMVASTATIN [Concomitant]
     Dosage: UNK, UNK
  6. SHARK CARTILAGE [Concomitant]
     Dosage: UNK, UNK
  7. IBUPROFEN [Suspect]
     Indication: ARTHRALGIA
     Dosage: UNK, UNK
     Route: 048
     Dates: start: 20050501, end: 20050507
  8. DICLOFENAC SODIUM [Suspect]
     Indication: ARTHRALGIA
     Dosage: UNK, UNK
     Route: 048
     Dates: start: 20050501, end: 20050507
  9. ASCRIPTIN [Concomitant]
     Dosage: UNK, UNK
  10. NUTRITION SUPPLEMENTS [Concomitant]

REACTIONS (1)
  - ACUTE HEPATIC FAILURE [None]
